FAERS Safety Report 7577537-X (Version None)
Quarter: 2011Q2

REPORT INFORMATION
  Report Type: 
  Country: None (occurrence: None)
  Receive Date: 20110628
  Receipt Date: 20110620
  Transmission Date: 20111010
  Serious: Yes (Hospitalization)
  Sender: FDA-Public Use
  Company Number: FR-BRISTOL-MYERS SQUIBB COMPANY-15784606

PATIENT
  Age: 53 Year
  Sex: Male
  Weight: 95 kg

DRUGS (3)
  1. TRUVADA [Suspect]
  2. REYATAZ [Suspect]
     Dates: start: 20100507
  3. RITONAVIR [Suspect]

REACTIONS (2)
  - NEPHROLITHIASIS [None]
  - RENAL COLIC [None]
